FAERS Safety Report 8619840-8 (Version None)
Quarter: 2012Q3

REPORT INFORMATION
  Report Type: 
  Country: None (occurrence: None)
  Receive Date: 20120824
  Receipt Date: 20120821
  Transmission Date: 20120928
  Serious: Yes (Death, Other)
  Sender: FDA-Public Use
  Company Number: JP-PFIZER INC-2012152156

PATIENT
  Age: 63 Year
  Sex: Male

DRUGS (10)
  1. FLUCONAZOLE [Concomitant]
     Indication: ANTIFUNGAL PROPHYLAXIS
     Dosage: 100 MG, 1X/DAY
     Route: 048
  2. DAUNORUBICIN HCL [Concomitant]
     Indication: ACUTE MYELOID LEUKAEMIA
     Dosage: UNK
     Route: 041
  3. NOVANTRONE [Concomitant]
     Indication: ACUTE MYELOID LEUKAEMIA
     Dosage: UNK
     Route: 041
  4. ETOPOSIDE [Concomitant]
     Indication: ACUTE MYELOID LEUKAEMIA
     Dosage: UNK
     Route: 041
  5. CYTARABINE [Concomitant]
     Indication: ACUTE MYELOID LEUKAEMIA
     Dosage: UNK
     Route: 041
  6. ZOSYN [Suspect]
     Dosage: 4.5 G, 3X/DAY
     Route: 041
  7. ZOSYN [Suspect]
     Indication: FEBRILE NEUTROPENIA
     Dosage: 4.5 G, 3X/DAY
     Route: 041
  8. MEROPENEM [Suspect]
     Indication: FEBRILE NEUTROPENIA
     Dosage: 3 G, 1X/DAY
     Route: 041
  9. TEICOPLANIN [Concomitant]
     Dosage: 5-20A?G/ML
     Route: 041
  10. VFEND [Concomitant]
     Indication: ANTIFUNGAL PROPHYLAXIS
     Dosage: 300-600 MG/DAY
     Route: 048

REACTIONS (1)
  - LUNG INFECTION PSEUDOMONAL [None]
